FAERS Safety Report 21652102 (Version 1)
Quarter: 2022Q4

REPORT INFORMATION
  Report Type: Report from Study
  Country: FR (occurrence: FR)
  Receive Date: 20221128
  Receipt Date: 20221128
  Transmission Date: 20230112
  Serious: Yes (Other)
  Sender: FDA-Public Use
  Company Number: FR-MYLANLABS-2022M1132040

PATIENT
  Age: 73 Year
  Sex: Female

DRUGS (6)
  1. PREGABALIN [Suspect]
     Active Substance: PREGABALIN
     Indication: Demyelinating polyneuropathy
     Dosage: UNK
     Route: 065
  2. PREGABALIN [Suspect]
     Active Substance: PREGABALIN
     Indication: Polyradiculoneuropathy
  3. HUMAN IMMUNOGLOBULIN G [Suspect]
     Active Substance: HUMAN IMMUNOGLOBULIN G
     Indication: Demyelinating polyneuropathy
     Dosage: UNK
     Route: 042
  4. HUMAN IMMUNOGLOBULIN G [Suspect]
     Active Substance: HUMAN IMMUNOGLOBULIN G
     Indication: Polyradiculoneuropathy
  5. MORPHINE [Suspect]
     Active Substance: MORPHINE
     Indication: Demyelinating polyneuropathy
     Dosage: UNK
     Route: 065
  6. MORPHINE [Suspect]
     Active Substance: MORPHINE
     Indication: Polyradiculoneuropathy

REACTIONS (1)
  - Drug ineffective [Unknown]
